FAERS Safety Report 20771269 (Version 1)
Quarter: 2022Q2

REPORT INFORMATION
  Report Type: Spontaneous
  Country: HR (occurrence: HR)
  Receive Date: 20220429
  Receipt Date: 20220429
  Transmission Date: 20220721
  Serious: Yes (Other)
  Sender: FDA-Public Use
  Company Number: HR-NOVARTISPH-NVSC2022HR093734

PATIENT
  Age: 38 Year
  Sex: Female

DRUGS (11)
  1. ZOLPIDEM [Suspect]
     Active Substance: ZOLPIDEM TARTRATE
     Indication: Product used for unknown indication
     Dosage: 300 MG, QD
     Route: 065
  2. TRAMADOL [Concomitant]
     Active Substance: TRAMADOL
     Indication: Product used for unknown indication
     Dosage: 1000 MG, QD
     Route: 065
  3. TRAMADOL [Concomitant]
     Active Substance: TRAMADOL
     Dosage: 100 MG, BID
     Route: 065
  4. DIAZEPAM [Concomitant]
     Active Substance: DIAZEPAM
     Indication: Product used for unknown indication
     Dosage: 2 MG, QD
     Route: 065
  5. DIAZEPAM [Concomitant]
     Active Substance: DIAZEPAM
     Dosage: 10 MG, TID
     Route: 065
  6. METHYLPHENIDATE [Concomitant]
     Active Substance: METHYLPHENIDATE
     Indication: Drug dependence
     Dosage: 18 MG, QD
     Route: 065
  7. METHYLPHENIDATE [Concomitant]
     Active Substance: METHYLPHENIDATE
     Dosage: 550 MG, QD
     Route: 065
  8. LAMOTRIGINE [Concomitant]
     Active Substance: LAMOTRIGINE
     Indication: Seizure
     Dosage: UNK, UNKNOWN
     Route: 065
  9. LAMOTRIGINE [Concomitant]
     Active Substance: LAMOTRIGINE
     Dosage: 100 MG, BID
     Route: 065
  10. AMISULPRIDE [Concomitant]
     Active Substance: AMISULPRIDE
     Indication: Product used for unknown indication
     Dosage: 50 MG, BID
     Route: 065
  11. FLUVOXAMINE [Concomitant]
     Active Substance: FLUVOXAMINE
     Indication: Product used for unknown indication
     Dosage: 100 MG, QD
     Route: 065

REACTIONS (1)
  - Intentional product misuse [Unknown]
